FAERS Safety Report 4530810-1 (Version None)
Quarter: 2004Q4

REPORT INFORMATION
  Report Type: 
  Country: None (occurrence: None)
  Receive Date: 20041129
  Receipt Date: 20041004
  Transmission Date: 20050328
  Serious: Yes (Hospitalization)
  Sender: FDA-Public Use
  Company Number: US_0405103187

PATIENT
  Age: 42 Year
  Sex: Male
  Weight: 72 kg

DRUGS (6)
  1. ZYPREXA [Suspect]
     Dosage: 15 MG
     Dates: start: 19980101
  2. LITHIUM [Concomitant]
  3. HALOPERIDOL [Concomitant]
  4. VALPROATE BISMUTH [Concomitant]
  5. PROZAC [Concomitant]
  6. ACETYLSALICYLIC ACID SRT [Concomitant]

REACTIONS (8)
  - BLOOD GLUCOSE INCREASED [None]
  - HYPERPHAGIA [None]
  - HYPERTENSION [None]
  - POLYDIPSIA [None]
  - POLYURIA [None]
  - TREMOR [None]
  - VISION BLURRED [None]
  - WEIGHT DECREASED [None]
